FAERS Safety Report 14840949 (Version 4)
Quarter: 2018Q3

REPORT INFORMATION
  Report Type: Spontaneous
  Country: US (occurrence: US)
  Receive Date: 20180503
  Receipt Date: 20180705
  Transmission Date: 20181010
  Serious: No
  Sender: FDA-Public Use
  Company Number: US-PFIZER INC-2018181259

PATIENT
  Age: 69 Year
  Sex: Female
  Weight: 72 kg

DRUGS (1)
  1. IBRANCE [Suspect]
     Active Substance: PALBOCICLIB
     Indication: BREAST CANCER METASTATIC
     Dosage: 125 MG, CYCLIC (DAYS 1?21 Q28 DAYS)
     Route: 048
     Dates: start: 20180422, end: 2018

REACTIONS (10)
  - Epistaxis [Unknown]
  - Full blood count decreased [Unknown]
  - Decreased appetite [Unknown]
  - White blood cell count decreased [Unknown]
  - Irritability [Unknown]
  - Pain [Unknown]
  - Abdominal discomfort [Unknown]
  - Nausea [Unknown]
  - Hiccups [Unknown]
  - Vomiting [Unknown]

NARRATIVE: CASE EVENT DATE: 2018
